FAERS Safety Report 18798224 (Version 1)
Quarter: 2021Q1

REPORT INFORMATION
  Report Type: Spontaneous
  Country: US (occurrence: US)
  Receive Date: 20210127
  Receipt Date: 20210127
  Transmission Date: 20210419
  Serious: Yes (Hospitalization)
  Sender: FDA-Public Use
  Company Number: None

PATIENT
  Age: 73 Year
  Sex: Female

DRUGS (1)
  1. GLATIRAMTER ACETATE 40 MG/ML MYLAN [Suspect]
     Active Substance: GLATIRAMER ACETATE
     Indication: MULTIPLE SCLEROSIS
     Route: 058
     Dates: start: 201907

REACTIONS (5)
  - Weight decreased [None]
  - Therapy interrupted [None]
  - Transient ischaemic attack [None]
  - Loss of consciousness [None]
  - Concussion [None]

NARRATIVE: CASE EVENT DATE: 202010
